FAERS Safety Report 10878182 (Version 1)
Quarter: 2015Q1

REPORT INFORMATION
  Report Type: Report from Study
  Country: US (occurrence: US)
  Receive Date: 20150302
  Receipt Date: 20150302
  Transmission Date: 20150721
  Serious: No
  Sender: FDA-Public Use
  Company Number: US-ABBVIE-14P-163-1269509-00

PATIENT
  Sex: Male

DRUGS (1)
  1. ANDROGEL [Suspect]
     Active Substance: TESTOSTERONE
     Indication: HYPOGONADISM
     Dosage: 5G GEL PACKET APPLY ONE PACKET TO THE SKIN EVERY AM
     Route: 061
     Dates: start: 20140710

REACTIONS (1)
  - Acne [Recovering/Resolving]
